FAERS Safety Report 17190361 (Version 1)
Quarter: 2019Q4

REPORT INFORMATION
  Report Type: Report from Study
  Country: IT (occurrence: IT)
  Receive Date: 20191223
  Receipt Date: 20191223
  Transmission Date: 20200122
  Serious: Yes (Hospitalization)
  Sender: FDA-Public Use
  Company Number: IT-TEVA-2019-IT-1155719

PATIENT
  Age: 84 Year
  Sex: Female

DRUGS (4)
  1. TAVOR (LORAZEPAM) [Suspect]
     Active Substance: LORAZEPAM
     Indication: INSOMNIA
     Dosage: 1 MG
     Route: 048
     Dates: start: 20100325, end: 20191110
  2. QUETIAPINA TEVA ITALIA 300 MG, COMPRESSE A RILASCIO PROLUNGATO [Suspect]
     Active Substance: QUETIAPINE FUMARATE
     Indication: PSYCHOTIC DISORDER
     Dosage: 300 MG
     Route: 048
     Dates: start: 20150428, end: 20191110
  3. TRITTICO 25 MG/ML GOCCE ORALI, SOLUZIONE [Suspect]
     Active Substance: TRAZODONE HYDROCHLORIDE
     Indication: AGITATION
     Dosage: 20 GTT
     Route: 048
     Dates: start: 20100325, end: 20191110
  4. GARDENALE 100 MG COMPRESSE [Suspect]
     Active Substance: PHENOBARBITAL
     Indication: EPILEPSY
     Dosage: 100 MG
     Route: 048
     Dates: start: 20181228, end: 20191110

REACTIONS (2)
  - Sopor [Recovered/Resolved]
  - Accidental overdose [Recovered/Resolved]

NARRATIVE: CASE EVENT DATE: 20191107
